FAERS Safety Report 8857169 (Version 2)
Quarter: 2012Q4

REPORT INFORMATION
  Report Type: 
  Country: FR (occurrence: FR)
  Receive Date: 20121024
  Receipt Date: 20121228
  Transmission Date: 20130627
  Serious: Yes (Other)
  Sender: FDA-Public Use
  Company Number: FR-PFIZER INC-2012263260

PATIENT
  Age: 33 Year
  Sex: Male
  Weight: 72 kg

DRUGS (4)
  1. TORISEL [Suspect]
     Indication: GLIOBLASTOMA
     Dosage: 25 mg, weekly
     Route: 042
     Dates: start: 20120412
  2. PREDNISOLONE [Concomitant]
     Indication: PARESIS
     Dosage: 20 mg, 1x/day
     Route: 048
     Dates: start: 20120504
  3. KEPPRA [Concomitant]
     Indication: EPILEPSY
     Dosage: 500 mg, 2x/day
     Route: 048
     Dates: start: 20120411
  4. AUGMENTIN [Concomitant]
     Indication: ADENITIS
     Dosage: 1000 mg, 3x/day
     Route: 048
     Dates: start: 20120430, end: 20120514

REACTIONS (1)
  - Hyperthyroidism [Recovering/Resolving]
